FAERS Safety Report 15228424 (Version 2)
Quarter: 2018Q3

REPORT INFORMATION
  Report Type: Report from Study
  Country: US (occurrence: US)
  Receive Date: 20180801
  Receipt Date: 20180816
  Transmission Date: 20181010
  Serious: Yes (Hospitalization, Other)
  Sender: FDA-Public Use
  Company Number: US-UCBSA-2018033709

PATIENT
  Age: 26 Year
  Sex: Female
  Weight: 67 kg

DRUGS (12)
  1. BRIVARACETAM [Suspect]
     Active Substance: BRIVARACETAM
     Dosage: 50 MG, QHS (ONCE DAILY (QD))
     Route: 048
     Dates: start: 20180713, end: 20180715
  2. CALCIUM + VITAMIN D [Concomitant]
     Active Substance: CALCIUM\VITAMIN D
     Indication: VITAMIN SUPPLEMENTATION
     Dosage: 1 DF, ONCE DAILY (QD)
     Route: 048
     Dates: start: 2006
  3. BRIVARACETAM [Suspect]
     Active Substance: BRIVARACETAM
     Indication: EPILEPSY
     Dosage: 2X/DAY (BID) (50 MG QAM AND 150 MG QHS)
     Route: 048
     Dates: start: 20180610, end: 20180710
  4. CLONAZEPAM. [Concomitant]
     Active Substance: CLONAZEPAM
     Indication: EPILEPSY
     Dosage: 2 MG, AT BED TIME (QHS)
     Route: 048
     Dates: start: 20110705
  5. FOSPHENYTOIN [Concomitant]
     Active Substance: FOSPHENYTOIN
     Indication: FOCAL DYSCOGNITIVE SEIZURES
     Dosage: 1000 MG
  6. BRIVARACETAM [Suspect]
     Active Substance: BRIVARACETAM
     Dosage: 100 MG, QHS (ONCE DAILY (QD))
     Route: 048
     Dates: start: 20180711, end: 20180712
  7. DILANTIN [Concomitant]
     Active Substance: PHENYTOIN
     Indication: EPILEPSY
     Dosage: 300 MG, ONCE DAILY (QD), AT BED TIME (QHS)
     Route: 048
     Dates: start: 20180706
  8. MELATONIN [Concomitant]
     Active Substance: MELATONIN
     Indication: ATTENTION DEFICIT/HYPERACTIVITY DISORDER
     Dosage: 5 MG, AS NEEDED (PRN)
     Route: 048
     Dates: start: 2006
  9. CLONAZEPAM. [Concomitant]
     Active Substance: CLONAZEPAM
     Dosage: 1 MG, ONCE DAILY (QD) (MIDDAY)
     Route: 048
     Dates: start: 20180407
  10. LORAZEPAM. [Concomitant]
     Active Substance: LORAZEPAM
     Indication: FOCAL DYSCOGNITIVE SEIZURES
     Dosage: 3 MG 3 TIMES
     Route: 042
  11. VIMPAT [Suspect]
     Active Substance: LACOSAMIDE
     Indication: EPILEPSY
     Dosage: 2X/DAY (BID) (150 MG MIDDAY AND 300 MG QHS)
     Route: 048
     Dates: start: 2009
  12. VITAMIN D [Concomitant]
     Active Substance: CHOLECALCIFEROL
     Indication: VITAMIN SUPPLEMENTATION
     Dosage: 2 DF, ONCE DAILY (QD)
     Route: 048
     Dates: start: 2006

REACTIONS (7)
  - Focal dyscognitive seizures [Recovered/Resolved]
  - Balance disorder [Not Recovered/Not Resolved]
  - Metabolic acidosis [Recovered/Resolved]
  - Generalised tonic-clonic seizure [Recovered/Resolved]
  - Off label use [Unknown]
  - Overdose [Unknown]
  - Leukocytosis [Recovered/Resolved]

NARRATIVE: CASE EVENT DATE: 2009
